FAERS Safety Report 22276299 (Version 1)
Quarter: 2023Q2

REPORT INFORMATION
  Report Type: Spontaneous
  Country: CN (occurrence: CN)
  Receive Date: 20230502
  Receipt Date: 20230502
  Transmission Date: 20230722
  Serious: Yes (Other)
  Sender: FDA-Public Use
  Company Number: CN-ABBOTT-2023A-1363083

PATIENT
  Age: 40 Year
  Sex: Male
  Weight: 70 kg

DRUGS (7)
  1. FENOFIBRATE [Suspect]
     Active Substance: FENOFIBRATE
     Indication: Pancreatitis acute
     Route: 048
     Dates: start: 20210228, end: 20210304
  2. FLURBIPROFEN AXETIL [Suspect]
     Active Substance: FLURBIPROFEN AXETIL
     Indication: Pancreatitis acute
     Route: 041
     Dates: start: 20210227, end: 20210227
  3. ETORICOXIB [Suspect]
     Active Substance: ETORICOXIB
     Indication: Pancreatitis acute
     Dosage: AN DUO XI(ETORICOXIB TABLETS); DAILY DOSE: 120 MG
     Route: 048
     Dates: start: 20210228, end: 20210303
  4. SODIUM CHLORIDE [Concomitant]
     Active Substance: SODIUM CHLORIDE
     Indication: Vehicle solution use
     Route: 042
     Dates: start: 20210227, end: 20210227
  5. SODIUM CHLORIDE [Concomitant]
     Active Substance: SODIUM CHLORIDE
     Indication: Vehicle solution use
     Route: 042
     Dates: start: 20210225, end: 20210227
  6. DEXAMETHASONE SODIUM PHOSPHATE [Suspect]
     Active Substance: DEXAMETHASONE SODIUM PHOSPHATE
     Indication: Pancreatitis acute
     Route: 042
     Dates: start: 20210225, end: 20210227
  7. FLURBIPROFEN [Concomitant]
     Active Substance: FLURBIPROFEN
     Indication: Pancreatitis acute
     Dosage: DE BAI AN(FLURBIPROFEN CATAPLASMS); DAILY DOSE: 160 MG
     Route: 061
     Dates: start: 20210227, end: 20210227

REACTIONS (1)
  - Transaminases increased [Recovering/Resolving]

NARRATIVE: CASE EVENT DATE: 20210301
